FAERS Safety Report 6437630-1 (Version None)
Quarter: 2009Q4

REPORT INFORMATION
  Report Type: 
  Country: None (occurrence: None)
  Receive Date: 20091112
  Receipt Date: 20091103
  Transmission Date: 20100525
  Serious: Yes (Other)
  Sender: FDA-Public Use
  Company Number: A0720258A

PATIENT
  Age: 73 Year
  Sex: Male
  Weight: 63.5 kg

DRUGS (6)
  1. RYTHMOL SR [Suspect]
     Indication: ATRIAL FLUTTER
     Dosage: 650MG PER DAY
     Route: 048
     Dates: start: 20050101
  2. NAPROSYN [Suspect]
     Indication: DRUG USE FOR UNKNOWN INDICATION
     Route: 065
  3. AMBIEN [Concomitant]
     Indication: DRUG USE FOR UNKNOWN INDICATION
     Route: 065
  4. NEXIUM [Concomitant]
     Dosage: 40MG PER DAY
     Route: 065
  5. VITAMINS [Concomitant]
     Indication: DRUG USE FOR UNKNOWN INDICATION
     Route: 065
  6. RYTHMOL [Concomitant]

REACTIONS (8)
  - ABDOMINAL PAIN [None]
  - ABDOMINAL TENDERNESS [None]
  - ATRIAL FIBRILLATION [None]
  - CARDIAC ABLATION [None]
  - CARDIOVERSION [None]
  - GASTRITIS [None]
  - NAUSEA [None]
  - RETCHING [None]
